FAERS Safety Report 21760712 (Version 2)
Quarter: 2022Q4

REPORT INFORMATION
  Report Type: Report from Study
  Country: FR (occurrence: FR)
  Receive Date: 20221221
  Receipt Date: 20221228
  Transmission Date: 20230113
  Serious: Yes (Other)
  Sender: FDA-Public Use
  Company Number: FR-BEH-2022150978

PATIENT
  Age: 5 Year
  Sex: Male
  Weight: 17 kg

DRUGS (7)
  1. IDELVION [Suspect]
     Active Substance: COAGULATION FACTOR IX RECOMBINANT HUMAN
     Indication: Factor IX deficiency
     Dosage: 1500 INTERNATIONAL UNIT, QOW
     Route: 042
     Dates: start: 20210815
  2. IDELVION [Suspect]
     Active Substance: COAGULATION FACTOR IX RECOMBINANT HUMAN
     Indication: Factor IX deficiency
     Dosage: 1500 INTERNATIONAL UNIT, QOW
     Route: 042
     Dates: start: 20210815
  3. IDELVION [Suspect]
     Active Substance: COAGULATION FACTOR IX RECOMBINANT HUMAN
     Indication: Prophylaxis
     Dosage: 1500 INTERNATIONAL UNIT
     Route: 042
     Dates: start: 20210621
  4. IDELVION [Suspect]
     Active Substance: COAGULATION FACTOR IX RECOMBINANT HUMAN
     Indication: Prophylaxis
     Dosage: 1500 INTERNATIONAL UNIT
     Route: 042
     Dates: start: 20210621
  5. IDELVION [Suspect]
     Active Substance: COAGULATION FACTOR IX RECOMBINANT HUMAN
     Dosage: 75 INTERNATIONAL UNIT/KILOGRAM
     Route: 042
     Dates: start: 20221018
  6. IDELVION [Suspect]
     Active Substance: COAGULATION FACTOR IX RECOMBINANT HUMAN
     Dosage: 75 INTERNATIONAL UNIT/KILOGRAM
     Route: 042
     Dates: start: 20221018
  7. CHOLECALCIFEROL [Concomitant]
     Active Substance: CHOLECALCIFEROL
     Dosage: 50000 INTERNATIONAL UNIT
     Route: 065

REACTIONS (3)
  - Ecchymosis [Recovered/Resolved]
  - Traumatic haematoma [Unknown]
  - Spontaneous haemorrhage [Recovered/Resolved]

NARRATIVE: CASE EVENT DATE: 20220322
